FAERS Safety Report 8826234 (Version 2)
Quarter: 2012Q4

REPORT INFORMATION
  Report Type: 
  Country: PL (occurrence: PL)
  Receive Date: 20121005
  Receipt Date: 20121112
  Transmission Date: 20130627
  Serious: Yes (Death)
  Sender: FDA-Public Use
  Company Number: PL-PFIZER INC-2012243530

PATIENT

DRUGS (1)
  1. ECALTA [Suspect]

REACTIONS (1)
  - Myocardial infarction [Fatal]
